FAERS Safety Report 4744718-X (Version None)
Quarter: 2005Q3

REPORT INFORMATION
  Report Type: 
  Country: None (occurrence: None)
  Receive Date: 20050815
  Receipt Date: 20050803
  Transmission Date: 20060218
  Serious: Yes (Hospitalization, Other)
  Sender: FDA-Public Use
  Company Number: 2005UW11425

PATIENT
  Age: 19 Year
  Sex: Female
  Weight: 62.7 kg

DRUGS (10)
  1. LIDOCAINE [Suspect]
     Indication: PREMEDICATION
     Dosage: UNKNOWN
     Route: 053
     Dates: start: 20050707, end: 20050707
  2. DIPRIVAN [Interacting]
     Indication: INDUCTION OF ANAESTHESIA
     Route: 042
     Dates: start: 20050707, end: 20050707
  3. LORAZEPAM [Interacting]
     Indication: PREMEDICATION
     Route: 048
     Dates: start: 20050706, end: 20050706
  4. DILAUDID [Interacting]
     Indication: PREMEDICATION
     Route: 042
     Dates: start: 20050707, end: 20050707
  5. FENTANYL [Interacting]
     Indication: PREMEDICATION
     Route: 042
     Dates: start: 20050707, end: 20050707
  6. VERSED [Interacting]
     Indication: PREMEDICATION
     Route: 042
     Dates: start: 20050707, end: 20050707
  7. MARCAINE [Interacting]
     Indication: PREMEDICATION
     Dosage: UNKNOWN
     Route: 053
     Dates: start: 20050707, end: 20050707
  8. SUCCINYLCHOLINE CHLORIDE [Interacting]
     Indication: INDUCTION OF ANAESTHESIA
     Route: 042
     Dates: start: 20050707, end: 20050707
  9. FORANE [Interacting]
     Indication: INDUCTION OF ANAESTHESIA
     Dosage: NORMAL, USUAL DOSAGE
     Route: 055
     Dates: start: 20050707, end: 20050707
  10. OXYGEN [Concomitant]
     Dates: start: 20050707, end: 20050707

REACTIONS (7)
  - COORDINATION ABNORMAL [None]
  - DEPRESSED LEVEL OF CONSCIOUSNESS [None]
  - DRUG INTERACTION POTENTIATION [None]
  - DYSKINESIA [None]
  - HYPERSENSITIVITY [None]
  - MUSCLE TWITCHING [None]
  - NEUROLOGICAL SYMPTOM [None]
